FAERS Safety Report 16351278 (Version 1)
Quarter: 2019Q2

REPORT INFORMATION
  Report Type: Spontaneous
  Country: IT (occurrence: IT)
  Receive Date: 20190524
  Receipt Date: 20190524
  Transmission Date: 20190711
  Serious: Yes (Other)
  Sender: FDA-Public Use
  Company Number: IT-AUROBINDO-AUR-APL-2019-028875

PATIENT

DRUGS (2)
  1. TACHIPIRINA [Suspect]
     Active Substance: ACETAMINOPHEN
     Indication: HEADACHE
     Dosage: 1 DOSAGE FORM, TOTAL
     Route: 048
     Dates: start: 20190309, end: 20190309
  2. IBUPROFEN. [Suspect]
     Active Substance: IBUPROFEN
     Indication: HEADACHE
     Dosage: 1 DOSAGE FORM, TOTAL
     Route: 048
     Dates: start: 20190310, end: 20190310

REACTIONS (2)
  - Hypersensitivity [Recovering/Resolving]
  - Periorbital oedema [Recovering/Resolving]

NARRATIVE: CASE EVENT DATE: 20190310
